FAERS Safety Report 9850959 (Version 2)
Quarter: 2014Q2

REPORT INFORMATION
  Report Type: Spontaneous
  Country: AU (occurrence: AU)
  Receive Date: 20140128
  Receipt Date: 20140427
  Transmission Date: 20141212
  Serious: Yes (Other)
  Sender: FDA-Public Use
  Company Number: AU-MYLANLABS-2014S1000914

PATIENT
  Age: 50 Year
  Sex: Male

DRUGS (4)
  1. ENDEP [Suspect]
     Indication: NECK PAIN
     Dates: end: 201402
  2. SOMAC [Concomitant]
     Indication: ANTACID THERAPY
  3. IRON [Concomitant]
     Indication: IRON DEFICIENCY
  4. HEART [Concomitant]
     Indication: PRODUCT USED FOR UNKNOWN INDICATION

REACTIONS (9)
  - Tendonitis [Not Recovered/Not Resolved]
  - Irritability [Not Recovered/Not Resolved]
  - Agitation [Not Recovered/Not Resolved]
  - Memory impairment [Not Recovered/Not Resolved]
  - Loss of consciousness [Not Recovered/Not Resolved]
  - Vision blurred [Not Recovered/Not Resolved]
  - Negative thoughts [Not Recovered/Not Resolved]
  - Blood pressure fluctuation [Not Recovered/Not Resolved]
  - Dysgeusia [Not Recovered/Not Resolved]
